FAERS Safety Report 5850701-3 (Version None)
Quarter: 2008Q3

REPORT INFORMATION
  Report Type: 
  Country: None (occurrence: None)
  Receive Date: 20080820
  Receipt Date: 20080811
  Transmission Date: 20090109
  Serious: Yes (Other)
  Sender: FDA-Public Use
  Company Number: GB-BRISTOL-MYERS SQUIBB COMPANY-14306534

PATIENT

DRUGS (1)
  1. ERBITUX [Suspect]

REACTIONS (1)
  - ILEUS PARALYTIC [None]
